FAERS Safety Report 7411490-4 (Version None)
Quarter: 2011Q2

REPORT INFORMATION
  Report Type: 
  Country: None (occurrence: None)
  Receive Date: 20110413
  Receipt Date: 20110401
  Transmission Date: 20111010
  Serious: Yes (Hospitalization)
  Sender: FDA-Public Use
  Company Number: PHHY2011TW27906

PATIENT
  Sex: Male
  Weight: 63.9 kg

DRUGS (1)
  1. GLEEVEC [Suspect]
     Indication: CHRONIC MYELOID LEUKAEMIA
     Dosage: 300 MG, UNK
     Route: 048
     Dates: start: 20091121

REACTIONS (4)
  - ASTHENIA [None]
  - DECREASED APPETITE [None]
  - DYSURIA [None]
  - OEDEMA PERIPHERAL [None]
